FAERS Safety Report 8224005-8 (Version None)
Quarter: 2012Q1

REPORT INFORMATION
  Report Type: 
  Country: None (occurrence: None)
  Receive Date: 20120321
  Receipt Date: 20120312
  Transmission Date: 20120608
  Serious: Yes (Other)
  Sender: FDA-Public Use
  Company Number: PHHY2012SE022824

PATIENT
  Age: 55 Year
  Sex: Female

DRUGS (6)
  1. LITHIONIT [Concomitant]
  2. CLOZAPINE [Suspect]
  3. CITALOPRAM HYDROBROMIDE [Concomitant]
  4. CLOZAPINE [Suspect]
     Dosage: 500 MG, 200 MG IN MORNING AND 300 MG IN EVENING
  5. LEVOTHYROXINE SODIUM [Concomitant]
  6. CLOZAPINE [Suspect]

REACTIONS (3)
  - AFFECTIVE DISORDER [None]
  - LEUKOPENIA [None]
  - AGGRESSION [None]
